FAERS Safety Report 8010289-8 (Version None)
Quarter: 2011Q4

REPORT INFORMATION
  Report Type: 
  Country: None (occurrence: None)
  Receive Date: 20111228
  Receipt Date: 20111226
  Transmission Date: 20120403
  Serious: Yes (Death, Hospitalization)
  Sender: FDA-Public Use
  Company Number: FR-JNJFOC-20111211362

PATIENT
  Age: 90 Year
  Sex: Female

DRUGS (10)
  1. AMLODIPINE BESYLATE [Concomitant]
     Route: 065
  2. PREVISCAN (FLUINDIONE) [Concomitant]
     Route: 065
     Dates: end: 20110619
  3. PIPERACILLIN AND TAZOBACTAM [Suspect]
     Indication: PNEUMONIA
     Route: 065
     Dates: start: 20110623
  4. LASIX [Concomitant]
     Route: 065
     Dates: end: 20110619
  5. AUGMENTIN [Concomitant]
     Indication: PNEUMONIA
     Route: 065
     Dates: start: 20110601, end: 20110601
  6. LEVOFLOXACIN [Suspect]
     Indication: PNEUMONIA
     Route: 065
     Dates: start: 20110623
  7. BISOPROLOL FUMARATE [Concomitant]
     Route: 065
  8. PERINDOPRIL ERBUMINE [Concomitant]
     Route: 065
  9. DIGOXIN [Concomitant]
     Route: 065
  10. RILMENIDINE [Concomitant]
     Route: 065
     Dates: end: 20110619

REACTIONS (3)
  - ENCEPHALOPATHY [None]
  - SOMNOLENCE [None]
  - COMA [None]
